FAERS Safety Report 6125289-2 (Version None)
Quarter: 2009Q1

REPORT INFORMATION
  Report Type: 
  Country: None (occurrence: None)
  Receive Date: 20090320
  Receipt Date: 20090316
  Transmission Date: 20090719
  Serious: Yes (Death)
  Sender: FDA-Public Use
  Company Number: PH-JNJFOC-20090303582

PATIENT
  Age: 58 Year
  Sex: Male

DRUGS (1)
  1. DORIPENEM [Suspect]
     Indication: PNEUMONIA
     Route: 041

REACTIONS (1)
  - BACTERAEMIA [None]
